FAERS Safety Report 11166960 (Version 1)
Quarter: 2015Q2

REPORT INFORMATION
  Report Type: Spontaneous
  Country: DK (occurrence: None)
  Receive Date: 20150603
  Receipt Date: 20150603
  Transmission Date: 20150821
  Serious: Yes (Other)
  Sender: FDA-Public Use
  Company Number: 2015DEPDK00625

PATIENT
  Age: 55 Year

DRUGS (5)
  1. RITUXIMAB (RITUXIMAB) [Concomitant]
     Active Substance: RITUXIMAB
  2. METHOTREXATE (METHOTREXATE SODIUM) [Concomitant]
     Active Substance: METHOTREXATE SODIUM
  3. DEPOCYT(E) (CYTARABINE) LIPOSOME INJECTABLE SUSPENSION, MG [Suspect]
     Active Substance: CYTARABINE
     Indication: CENTRAL NERVOUS SYSTEM LYMPHOMA
     Dosage: 50 MG. DAY 2, TREATMENT PHASE A1, INTRATHECAL
     Route: 037
  4. IFOSFAMIDE. [Concomitant]
     Active Substance: IFOSFAMIDE
  5. DEXAMETHASONE (DEXAMETHASONE SODIUM PHOSPHATE) [Concomitant]

REACTIONS (5)
  - Arachnoiditis [None]
  - Pyrexia [None]
  - Vomiting [None]
  - Pain in extremity [None]
  - Pleocytosis [None]
